FAERS Safety Report 9504120 (Version 1)
Quarter: 2013Q3

REPORT INFORMATION
  Report Type: Spontaneous
  Country: FR (occurrence: FR)
  Receive Date: 20130906
  Receipt Date: 20130906
  Transmission Date: 20140515
  Serious: Yes (Life-Threatening)
  Sender: FDA-Public Use
  Company Number: FR-ASTRAZENECA-2013SE67039

PATIENT
  Age: 59 Year
  Sex: Male

DRUGS (4)
  1. DIPRIVAN [Suspect]
     Indication: ANAESTHESIA
     Dosage: ONCE/SINGLE ADMINISTRATION
     Route: 042
     Dates: start: 20130524, end: 20130524
  2. TRACRIUM [Suspect]
     Indication: ANAESTHESIA
     Route: 042
     Dates: start: 20130524, end: 20130524
  3. SUFENTANIL [Suspect]
     Indication: ANAESTHESIA
     Route: 042
     Dates: start: 20130524, end: 20130524
  4. CEFAZOLINE [Suspect]
     Indication: ANTIBIOTIC PROPHYLAXIS
     Route: 042
     Dates: start: 20130524, end: 20130524

REACTIONS (5)
  - Oxygen saturation decreased [Recovering/Resolving]
  - Carbon dioxide decreased [Recovering/Resolving]
  - Extrasystoles [Recovering/Resolving]
  - Tachycardia [Recovering/Resolving]
  - Anaphylactic shock [Recovered/Resolved]
